FAERS Safety Report 9370721 (Version 3)
Quarter: 2013Q3

REPORT INFORMATION
  Report Type: Spontaneous
  Country: BR (occurrence: BR)
  Receive Date: 20130626
  Receipt Date: 20130925
  Transmission Date: 20140515
  Serious: Yes (Hospitalization)
  Sender: FDA-Public Use
  Company Number: BR-B.I. PHARMACEUTICALS,INC./RIDGEFIELD-2013-BR-00759BR

PATIENT
  Age: 59 Year
  Sex: Female

DRUGS (3)
  1. PRADAXA [Suspect]
     Indication: CEREBROVASCULAR ACCIDENT PROPHYLAXIS
     Dosage: 300 MG
     Route: 048
     Dates: start: 201302
  2. PRADAXA [Suspect]
     Indication: ATRIAL FIBRILLATION
  3. PROPAFENONA [Concomitant]

REACTIONS (5)
  - Ischaemic stroke [Recovered/Resolved with Sequelae]
  - Hemiparesis [Not Recovered/Not Resolved]
  - Carotid artery occlusion [Recovered/Resolved with Sequelae]
  - Aphasia [Not Recovered/Not Resolved]
  - Embolism [Recovered/Resolved with Sequelae]
